FAERS Safety Report 23889395 (Version 1)
Quarter: 2024Q2

REPORT INFORMATION
  Report Type: Spontaneous
  Country: GB (occurrence: GB)
  Receive Date: 20240523
  Receipt Date: 20240523
  Transmission Date: 20240716
  Serious: Yes (Hospitalization, Other)
  Sender: FDA-Public Use
  Company Number: GB-ROCHE-2006851

PATIENT
  Age: 12 Year
  Sex: Male
  Weight: 58 kg

DRUGS (2)
  1. RITUXIMAB [Suspect]
     Active Substance: RITUXIMAB
     Indication: Factor VIII deficiency
     Dosage: UNK
  2. RITUXIMAB [Suspect]
     Active Substance: RITUXIMAB
     Indication: Immune tolerance induction

REACTIONS (14)
  - Haemarthrosis [Unknown]
  - Pyrexia [Recovered/Resolved]
  - Muscle haemorrhage [Unknown]
  - Epistaxis [Unknown]
  - Device related infection [Unknown]
  - Pseudomonas infection [Unknown]
  - Bacterial sepsis [Unknown]
  - Klebsiella sepsis [Unknown]
  - Central venous catheterisation [Unknown]
  - Klebsiella infection [Unknown]
  - Quality of life decreased [Unknown]
  - Therapy partial responder [Unknown]
  - Poor venous access [Unknown]
  - Off label use [Unknown]
